FAERS Safety Report 5269288-1 (Version None)
Quarter: 2007Q1

REPORT INFORMATION
  Report Type: 
  Country: None (occurrence: None)
  Receive Date: 20070319
  Receipt Date: 20070312
  Transmission Date: 20070707
  Serious: Yes (Other)
  Sender: FDA-Public Use
  Company Number: US-PFIZER INC-2007005636

PATIENT
  Sex: Female
  Weight: 63 kg

DRUGS (8)
  1. GENOTROPIN [Suspect]
     Indication: HYPOPITUITARISM
  2. DDAVP (NEEDS NO REFRIGERATION) [Concomitant]
     Dosage: DAILY DOSE:.75MG-FREQ:DAILY
  3. CORTEF [Concomitant]
     Dosage: DAILY DOSE:10MG/M2-FREQ:DAILY
     Route: 048
  4. SYNTHROID [Concomitant]
     Dosage: DAILY DOSE:.1MG-FREQ:DAILY
     Route: 048
  5. CONCERTA [Concomitant]
     Dosage: DAILY DOSE:.54MG-FREQ:DAILY
  6. CLONIDINE [Concomitant]
     Dosage: DAILY DOSE:.1MG-FREQ:DAILY
  7. MELATONIN [Concomitant]
  8. MULTI-VITAMINS [Concomitant]
     Dosage: FREQ:DAILY

REACTIONS (2)
  - CRANIOPHARYNGIOMA [None]
  - NEOPLASM RECURRENCE [None]
